FAERS Safety Report 7944934-X (Version None)
Quarter: 2011Q4

REPORT INFORMATION
  Report Type: 
  Country: None (occurrence: None)
  Receive Date: 20111129
  Receipt Date: 20111121
  Transmission Date: 20120403
  Serious: Yes (Hospitalization)
  Sender: FDA-Public Use
  Company Number: PHHY2011FR102979

PATIENT

DRUGS (1)
  1. RITALIN [Suspect]
     Dosage: UNK UKN, UNK
     Dates: start: 20111001

REACTIONS (6)
  - DYSKINESIA [None]
  - DYSTONIA [None]
  - CHOREOATHETOSIS [None]
  - PYREXIA [None]
  - EXTRAPYRAMIDAL DISORDER [None]
  - LIMB DISCOMFORT [None]
